FAERS Safety Report 9057796 (Version 2)
Quarter: 2013Q1

REPORT INFORMATION
  Report Type: Spontaneous
  Country: DE (occurrence: DE)
  Receive Date: 20130204
  Receipt Date: 20130308
  Transmission Date: 20140127
  Serious: Yes (Hospitalization, Other)
  Sender: FDA-Public Use
  Company Number: DE-BAYER-2013-013287

PATIENT
  Age: 75 Year
  Sex: Female
  Weight: 70 kg

DRUGS (4)
  1. XARELTO [Suspect]
     Indication: ARTHROSCOPY
     Dosage: 10 MG, UNK
     Route: 048
  2. XARELTO [Suspect]
     Indication: THROMBOSIS PROPHYLAXIS
  3. HEPARIN [Suspect]
  4. AVALOX [Suspect]

REACTIONS (1)
  - Haemarthrosis [Recovered/Resolved]
